FAERS Safety Report 7911419-6 (Version None)
Quarter: 2011Q4

REPORT INFORMATION
  Report Type: 
  Country: None (occurrence: None)
  Receive Date: 20111114
  Receipt Date: 20111031
  Transmission Date: 20120403
  Serious: Yes (Other)
  Sender: FDA-Public Use
  Company Number: GB-MYLANLABS-2011S1022550

PATIENT
  Sex: Male

DRUGS (1)
  1. BACLOFEN [Suspect]
     Indication: PRODUCT USED FOR UNKNOWN INDICATION
     Dates: start: 20100101, end: 20110101

REACTIONS (7)
  - ANXIETY [None]
  - HALLUCINATION [None]
  - DEPENDENCE [None]
  - WITHDRAWAL SYNDROME [None]
  - PANIC ATTACK [None]
  - ANGER [None]
  - MENTAL DISORDER [None]
